FAERS Safety Report 6081166-7 (Version None)
Quarter: 2009Q1

REPORT INFORMATION
  Report Type: 
  Country: None (occurrence: None)
  Receive Date: 20090213
  Receipt Date: 20090129
  Transmission Date: 20090719
  Serious: Yes (Other)
  Sender: FDA-Public Use
  Company Number: 2009S1001749

PATIENT
  Sex: Male

DRUGS (4)
  1. BACLOFEN [Suspect]
     Indication: DRUG USE FOR UNKNOWN INDICATION
  2. LIORESAL [Concomitant]
  3. MORPHINE [Concomitant]
  4. DRONABINOL [Concomitant]

REACTIONS (1)
  - MUSCLE SPASTICITY [None]
